FAERS Safety Report 19099763 (Version 3)
Quarter: 2021Q2

REPORT INFORMATION
  Report Type: Report from Study
  Country: BR (occurrence: BR)
  Receive Date: 20210406
  Receipt Date: 20210625
  Transmission Date: 20210717
  Serious: Yes (Hospitalization, Other)
  Sender: FDA-Public Use
  Company Number: BR-BRISTOL-MYERS SQUIBB COMPANY-BMS-2021-032122

PATIENT
  Age: 50 Year
  Sex: Male

DRUGS (4)
  1. NIVOLUMAB [Suspect]
     Active Substance: NIVOLUMAB
     Indication: METASTATIC RENAL CELL CARCINOMA
     Dosage: 360 MILLIGRAM, Q3WK
     Route: 042
     Dates: start: 20200511, end: 20210330
  2. VITAMIN B12 [COBAMAMIDE] [Concomitant]
     Active Substance: COBAMAMIDE
     Indication: SUPPLEMENTATION THERAPY
     Dosage: 1 DOSAGE FORM = 1 PILL, QD
     Route: 048
     Dates: start: 201407
  3. CENTRUM A TO ZINC [Concomitant]
     Active Substance: MINERALS\VITAMINS
     Indication: SUPPLEMENTATION THERAPY
     Dosage: 1 DOSAGE FORM = 1 PILL, QD
     Route: 048
     Dates: start: 201407
  4. BEMPEGALDESLEUKIN [Suspect]
     Active Substance: BEMPEGALDESLEUKIN
     Indication: METASTATIC RENAL CELL CARCINOMA
     Dosage: 0.474 MILLIGRAM, Q3WK
     Route: 042
     Dates: start: 20200511, end: 20210330

REACTIONS (1)
  - Ischaemic stroke [Recovered/Resolved]

NARRATIVE: CASE EVENT DATE: 20210326
